FAERS Safety Report 19946529 (Version 1)
Quarter: 2021Q4

REPORT INFORMATION
  Report Type: Spontaneous
  Country: IT (occurrence: IT)
  Receive Date: 20211012
  Receipt Date: 20211012
  Transmission Date: 20220304
  Serious: Yes (Other)
  Sender: FDA-Public Use
  Company Number: None

PATIENT
  Age: 68 Year
  Sex: Female

DRUGS (1)
  1. AMOXICILLIN [Suspect]
     Active Substance: AMOXICILLIN
     Indication: Dental operation
     Dosage: 1 DF, TOTAL
     Route: 048
     Dates: start: 20210922, end: 20210922

REACTIONS (4)
  - Malaise [Recovering/Resolving]
  - Pruritus [Recovering/Resolving]
  - Drug hypersensitivity [Recovering/Resolving]
  - Vomiting [Recovering/Resolving]

NARRATIVE: CASE EVENT DATE: 20210922
